FAERS Safety Report 8041840-X (Version None)
Quarter: 2012Q1

REPORT INFORMATION
  Report Type: 
  Country: None (occurrence: None)
  Receive Date: 20120112
  Receipt Date: 20111228
  Transmission Date: 20120608
  Serious: Yes (Death)
  Sender: FDA-Public Use
  Company Number: US-UCBSA-049284

PATIENT
  Age: 49 Year
  Sex: Female

DRUGS (8)
  1. ACETAMINOPHEN [Suspect]
     Route: 048
  2. SALICYLATE [Suspect]
     Route: 048
  3. TRAMADOL HCL [Suspect]
     Route: 048
  4. OPIOID [Suspect]
     Route: 048
  5. ALPRAZOLAM [Suspect]
     Route: 048
  6. COCAINE [Suspect]
     Route: 048
  7. MARIJUANA [Suspect]
     Route: 048
  8. CARISOPRODOL [Suspect]
     Route: 048

REACTIONS (1)
  - DRUG ABUSE [None]
